FAERS Safety Report 22323497 (Version 2)
Quarter: 2023Q2

REPORT INFORMATION
  Report Type: Spontaneous
  Country: US (occurrence: US)
  Receive Date: 20230516
  Receipt Date: 20230614
  Transmission Date: 20230721
  Serious: Yes (Other)
  Sender: FDA-Public Use
  Company Number: US-SANOFI-01609085

PATIENT
  Sex: Male

DRUGS (2)
  1. XYLITOL [Suspect]
     Active Substance: XYLITOL
     Indication: Dry mouth
     Dosage: UNK
     Route: 065
  2. XYLITOL [Suspect]
     Active Substance: XYLITOL
     Indication: Dry throat

REACTIONS (4)
  - Choking [Unknown]
  - Cough [Unknown]
  - Vomiting [Unknown]
  - Drug ineffective [Unknown]
